FAERS Safety Report 8847890 (Version 1)
Quarter: 2012Q4

REPORT INFORMATION
  Report Type: Report from Study
  Country: BY (occurrence: BY)
  Receive Date: 20121018
  Receipt Date: 20121018
  Transmission Date: 20130627
  Serious: Yes (Hospitalization, Other)
  Sender: FDA-Public Use
  Company Number: BY-BAXTER-2012BAX019606

PATIENT
  Age: 64 Year
  Sex: Female
  Weight: 82 kg

DRUGS (6)
  1. ENDOXAN 1000 MG, POUDRE POUR SOLUTION INJECTABLE [Suspect]
     Indication: CHRONIC LYMPHOID LEUKAEMIA
     Route: 042
     Dates: start: 20110921
  2. ENDOXAN 1000 MG, POUDRE POUR SOLUTION INJECTABLE [Suspect]
     Route: 042
     Dates: start: 20120209
  3. RITUXIMAB [Suspect]
     Indication: CHRONIC LYMPHOID LEUKAEMIA
     Route: 042
     Dates: start: 20110920
  4. RITUXIMAB [Suspect]
     Route: 042
     Dates: start: 20120206
  5. CLADRIBINE [Suspect]
     Indication: CHRONIC LYMPHOID LEUKAEMIA
     Route: 042
     Dates: start: 20110921
  6. CLADRIBINE [Suspect]
     Route: 042
     Dates: start: 20120209

REACTIONS (2)
  - Bronchitis [Recovered/Resolved]
  - Pneumonia [Unknown]
